FAERS Safety Report 8315385-3 (Version None)
Quarter: 2012Q2

REPORT INFORMATION
  Report Type: 
  Country: None (occurrence: None)
  Receive Date: 20120426
  Receipt Date: 20120417
  Transmission Date: 20120825
  Serious: Yes (Other)
  Sender: FDA-Public Use
  Company Number: GB-TEVA-333721ISR

PATIENT
  Age: 37 Year
  Sex: Male

DRUGS (6)
  1. OMEPRAZOLE [Concomitant]
     Dosage: 20 MG DAILY
     Route: 048
  2. LEVOTHYROXINE SODIUM [Concomitant]
     Indication: PSYCHOTIC DISORDER
     Dosage: 100 MG, DAILY
     Route: 048
  3. VALPROIC ACID [Suspect]
     Indication: MOOD SWINGS
     Dosage: 2500 MG, DAILY
     Route: 048
     Dates: start: 20110501
  4. CLOZARIL [Suspect]
     Indication: PSYCHOTIC DISORDER
     Dosage: 625 MG, DAILY
     Route: 048
     Dates: start: 20110509
  5. AMISULPRIDE [Concomitant]
     Indication: PSYCHOTIC DISORDER
     Dosage: 1200 MG, DAILY
     Route: 048
     Dates: start: 20111101
  6. HYOSCINE HYDROBROMIDE [Concomitant]
     Dosage: 300 MG, DAILY
     Route: 048

REACTIONS (3)
  - TACHYCARDIA [None]
  - THROMBOCYTOPENIA [None]
  - DIABETES MELLITUS [None]
